FAERS Safety Report 13262643 (Version 1)
Quarter: 2017Q1

REPORT INFORMATION
  Report Type: Spontaneous
  Country: CA (occurrence: CA)
  Receive Date: 20170223
  Receipt Date: 20170223
  Transmission Date: 20170428
  Serious: Yes (Other)
  Sender: FDA-Public Use
  Company Number: CA-TEVA-742829ACC

PATIENT
  Age: 54 Year
  Sex: Female

DRUGS (2)
  1. PRAMIPEXOLE. [Suspect]
     Active Substance: PRAMIPEXOLE
     Indication: RESTLESS LEGS SYNDROME
     Dosage: 1 DOSAGE FORMS DAILY;
     Route: 047
  2. PMS-SENOSIDES [Concomitant]

REACTIONS (1)
  - Gambling [Unknown]
